FAERS Safety Report 7850751 (Version 1)
Quarter: 2020Q3

REPORT INFORMATION
  Report Type: Spontaneous
  Country: FR (occurrence: None)
  Receive Date: 20110215
  Receipt Date: 20110215
  Transmission Date: 20201105
  Serious: Yes (Death, Life-Threatening)
  Sender: FDA-Public Use
  Company Number: IDA-00496

PATIENT
  Age: 1 Day
  Sex: Male

DRUGS (9)
  1. ROPIVACAINE HYDROCHLORIDE. [Suspect]
     Active Substance: ROPIVACAINE HYDROCHLORIDE
     Dosage: DOSE TEXT: 7.5 MG/ML, 20 ML TRANSPLACENTAL
     Route: 064
     Dates: start: 20100915, end: 20100915
  2. EPHEDRINE. [Suspect]
     Active Substance: EPHEDRINE
     Indication: GENERAL ANAESTHESIA
     Dosage: 2 DF TRANSPLACENTAL
     Route: 064
     Dates: start: 20100915, end: 20100915
  3. DIPRIVAN [Suspect]
     Active Substance: PROPOFOL
     Indication: INDUCTION OF ANAESTHESIA
     Dosage: 210 MG ONCE TRANSPLACENTAL
     Route: 064
     Dates: start: 20100915
  4. XYLOCAINE [Suspect]
     Active Substance: LIDOCAINE HYDROCHLORIDE
     Dosage: DOSE TEXT: 2% TRANSPLACENTAL
     Route: 064
     Dates: start: 20100915, end: 20100915
  5. SUFENTANIL CITRATE. [Suspect]
     Active Substance: SUFENTANIL CITRATE
     Dosage: DOSE TEXT: 10 UG/2 ML TRANSPLACENTAL
     Route: 064
     Dates: start: 20100915, end: 20100915
  6. LOXEN (NICARDIPINE HYDROCHLORIDE) [Suspect]
     Active Substance: NICARDIPINE HYDROCHLORIDE
     Indication: HYPERTENSION
     Dosage: 50 MG BID TRANSPLACENTAL
     Route: 064
     Dates: end: 20100915
  7. TRACRIUM [Suspect]
     Active Substance: ATRACURIUM BESYLATE
     Indication: GENERAL ANAESTHESIA
     Dosage: DOSE TEXT: 25 MG/2.5 ML TRANSPLACENTAL
     Route: 064
     Dates: start: 20100915
  8. PROPRANOLOL [Suspect]
     Active Substance: PROPRANOLOL HYDROCHLORIDE
     Indication: HYPERTENSION
     Dosage: 10 MG DAILY TRANSPLACENTAL
     Route: 064
     Dates: end: 20100915
  9. CELOCURIN [Suspect]
     Active Substance: SUCCINYLCHOLINE CHLORIDE
     Indication: ANAESTHESIA
     Dosage: 70 MG ONCE TRANSPLACENTAL
     Route: 064
     Dates: start: 20100915

REACTIONS (8)
  - Apgar score low [None]
  - Caesarean section [None]
  - Premature baby [None]
  - Maternal drugs affecting foetus [None]
  - Apparent death [None]
  - Circulatory failure neonatal [None]
  - Drug interaction [None]
  - Foetal heart rate decreased [None]

NARRATIVE: CASE EVENT DATE: 20100915
